FAERS Safety Report 6276241-8 (Version None)
Quarter: 2009Q3

REPORT INFORMATION
  Report Type: 
  Country: None (occurrence: None)
  Receive Date: 20090722
  Receipt Date: 20090710
  Transmission Date: 20100115
  Serious: Yes (Other)
  Sender: FDA-Public Use
  Company Number: US-CELGENEUS-163-20785-09042650

PATIENT
  Sex: Male

DRUGS (2)
  1. THALOMID [Suspect]
     Indication: MULTIPLE MYELOMA
     Route: 048
     Dates: start: 20090401
  2. THALOMID [Suspect]
     Indication: AMYLOIDOSIS
     Route: 048
     Dates: start: 20090201, end: 20090301

REACTIONS (1)
  - NEPHROTIC SYNDROME [None]
